FAERS Safety Report 13326068 (Version 3)
Quarter: 2017Q2

REPORT INFORMATION
  Report Type: Spontaneous
  Country: JP (occurrence: JP)
  Receive Date: 20170310
  Receipt Date: 20170414
  Transmission Date: 20170830
  Serious: Yes (Death, Hospitalization, Disabling, Other)
  Sender: FDA-Public Use
  Company Number: JP-BAXTER-2016BAX031594

PATIENT
  Age: 67 Year
  Sex: Female

DRUGS (14)
  1. PREDONINE [Suspect]
     Active Substance: PREDNISOLONE
     Route: 042
     Dates: start: 20160621, end: 20161111
  2. SANDIMMUN [Suspect]
     Active Substance: CYCLOSPORINE
     Indication: DERMATOMYOSITIS
     Route: 042
     Dates: start: 20160621, end: 20160705
  3. BACTRAMIN [Suspect]
     Active Substance: SULFAMETHOXAZOLE\TRIMETHOPRIM
     Route: 042
     Dates: start: 20160621, end: 20161101
  4. ENDOXAN 1G [Suspect]
     Active Substance: CYCLOPHOSPHAMIDE
     Dosage: 9TH PULSE THERAPY (LAST THERAPY)
     Route: 041
     Dates: start: 20160921
  5. PREDONINE [Suspect]
     Active Substance: PREDNISOLONE
     Dosage: DOSE TAPERING STARTED
     Route: 048
     Dates: start: 20160610
  6. VFEND [Suspect]
     Active Substance: VORICONAZOLE
     Indication: BRONCHOPULMONARY ASPERGILLOSIS
     Route: 065
     Dates: start: 20160622, end: 20161101
  7. VORICONAZOLE. [Suspect]
     Active Substance: VORICONAZOLE
     Indication: BRONCHOPULMONARY ASPERGILLOSIS
     Route: 065
     Dates: start: 20160615
  8. GANCICLOVIR. [Suspect]
     Active Substance: GANCICLOVIR
     Indication: CYTOMEGALOVIRUS INFECTION
     Route: 065
     Dates: start: 20160622, end: 20160704
  9. ENDOXAN 1G [Suspect]
     Active Substance: CYCLOPHOSPHAMIDE
     Indication: DERMATOMYOSITIS
     Route: 041
     Dates: start: 20160511
  10. PREDONINE [Suspect]
     Active Substance: PREDNISOLONE
     Indication: DERMATOMYOSITIS
     Route: 048
     Dates: start: 20160510
  11. PREDONINE [Suspect]
     Active Substance: PREDNISOLONE
     Route: 041
     Dates: start: 20160615, end: 20160620
  12. BAKTAR [Suspect]
     Active Substance: SULFAMETHOXAZOLE\TRIMETHOPRIM
     Indication: PROPHYLAXIS
     Route: 048
     Dates: start: 20160517, end: 20160620
  13. PROGRAF [Suspect]
     Active Substance: TACROLIMUS\TACROLIMUS ANHYDROUS
     Indication: DERMATOMYOSITIS
     Route: 048
     Dates: start: 20160510, end: 20160620
  14. BACTRAMIN [Suspect]
     Active Substance: SULFAMETHOXAZOLE\TRIMETHOPRIM
     Indication: PROPHYLAXIS
     Route: 041
     Dates: start: 20160615

REACTIONS (12)
  - Interstitial lung disease [Fatal]
  - Respiratory disorder [Unknown]
  - Bronchopulmonary aspergillosis [Recovering/Resolving]
  - Infection [Unknown]
  - Cytomegalovirus infection [Unknown]
  - Pancytopenia [Recovering/Resolving]
  - Respiratory failure [Unknown]
  - Pneumothorax [Unknown]
  - Infectious pleural effusion [Unknown]
  - Cardiac failure [Fatal]
  - Condition aggravated [Unknown]
  - Thrombotic microangiopathy [Recovered/Resolved]

NARRATIVE: CASE EVENT DATE: 201606
